FAERS Safety Report 24297478 (Version 5)
Quarter: 2025Q3

REPORT INFORMATION
  Report Type: Report from Study
  Country: JP (occurrence: JP)
  Receive Date: 20240909
  Receipt Date: 20250903
  Transmission Date: 20251021
  Serious: Yes (Hospitalization, Other)
  Sender: ALNYLAM PHARMACEUTICALS
  Company Number: JP-ALNYLAM PHARMACEUTICALS, INC.-ALN-2023-001465

PATIENT

DRUGS (27)
  1. AMVUTTRA [Suspect]
     Active Substance: VUTRISIRAN
     Indication: Hereditary neuropathic amyloidosis
     Dosage: 25 MILLIGRAM, Q3M
     Route: 058
     Dates: start: 20230313
  2. Chocola a [Concomitant]
     Indication: Vitamin supplementation
     Route: 048
     Dates: start: 20230313
  3. ELDECALCITOL [Concomitant]
     Active Substance: ELDECALCITOL
     Indication: Osteoporosis
     Route: 048
  4. ASPIRIN [Concomitant]
     Active Substance: ASPIRIN
     Indication: Thrombosis prophylaxis
     Route: 048
     Dates: end: 20250303
  5. LANSOPRAZOLE [Concomitant]
     Active Substance: LANSOPRAZOLE
     Indication: Prophylaxis
     Route: 048
  6. ATORVASTATIN [Concomitant]
     Active Substance: ATORVASTATIN
     Indication: Lipid metabolism disorder
     Route: 048
  7. DOMPERIDONE [Concomitant]
     Active Substance: DOMPERIDONE
     Indication: Chronic gastritis
     Route: 048
  8. MIYA-BM [Concomitant]
     Active Substance: CLOSTRIDIUM BUTYRICUM SPORES STRAIN M-55
     Indication: Diarrhoea
     Route: 048
  9. LEVETIRACETAM [Concomitant]
     Active Substance: LEVETIRACETAM
     Indication: Epilepsy
     Route: 048
     Dates: end: 20250403
  10. LEVETIRACETAM [Concomitant]
     Active Substance: LEVETIRACETAM
     Route: 048
     Dates: start: 20250419
  11. ALBUMIN TANNATE [Concomitant]
     Active Substance: ALBUMIN TANNATE
     Indication: Hereditary neuropathic amyloidosis
     Route: 048
     Dates: end: 20241016
  12. FOSRAVUCONAZOLE L-LYSINE ETHANOLATE [Concomitant]
     Active Substance: FOSRAVUCONAZOLE L-LYSINE ETHANOLATE
     Indication: Dermatophytosis of nail
     Route: 048
     Dates: start: 20240415, end: 20240707
  13. CEFACLOR [Concomitant]
     Active Substance: CEFACLOR
     Indication: Cellulitis
     Route: 048
     Dates: start: 20240513, end: 20240519
  14. CEFACLOR [Concomitant]
     Active Substance: CEFACLOR
     Route: 048
     Dates: start: 20240723, end: 20240801
  15. SENNOSIDES [Concomitant]
     Active Substance: SENNOSIDES
     Indication: Constipation
     Route: 048
     Dates: start: 20240620, end: 20240622
  16. GLYCERIN [Concomitant]
     Active Substance: GLYCERIN
     Indication: Constipation
     Route: 061
     Dates: start: 20240620, end: 20240623
  17. GENTAMICIN SULFATE [Concomitant]
     Active Substance: GENTAMICIN SULFATE
     Indication: Wound
     Route: 061
     Dates: start: 20240622, end: 20240708
  18. CELECOXIB [Concomitant]
     Active Substance: CELECOXIB
     Indication: Cellulitis
     Route: 048
     Dates: start: 20240730, end: 20240820
  19. FEBUXOSTAT [Concomitant]
     Active Substance: FEBUXOSTAT
     Indication: Hyperuricaemia
     Route: 048
     Dates: start: 20241007
  20. Memantine hydrochloride od [Concomitant]
     Indication: Dementia Alzheimer^s type
     Route: 048
     Dates: start: 20241017
  21. SULFAMETHOXAZOLE\TRIMETHOPRIM [Concomitant]
     Active Substance: SULFAMETHOXAZOLE\TRIMETHOPRIM
     Indication: Nocturia
     Route: 048
     Dates: start: 20241030, end: 20241103
  22. BISOPROLOL [Concomitant]
     Active Substance: BISOPROLOL
     Indication: Hypertension
     Route: 048
     Dates: start: 20241219, end: 20250212
  23. OLMESARTAN MEDOXOMIL [Concomitant]
     Active Substance: OLMESARTAN MEDOXOMIL
     Indication: Hypertension
     Route: 048
     Dates: start: 20241219, end: 20250108
  24. ENTRESTO [Concomitant]
     Active Substance: SACUBITRIL\VALSARTAN
     Indication: Hypertension
     Route: 048
     Dates: start: 20250109
  25. CARVEDILOL [Concomitant]
     Active Substance: CARVEDILOL
     Indication: Hypertension
     Route: 048
     Dates: start: 20250213
  26. LEVETIRACETAM [Concomitant]
     Active Substance: LEVETIRACETAM
     Indication: Epilepsy
     Route: 065
     Dates: start: 20250404, end: 20250406
  27. LEVETIRACETAM [Concomitant]
     Active Substance: LEVETIRACETAM
     Indication: Epilepsy
     Route: 048
     Dates: start: 20250407, end: 20250418

REACTIONS (46)
  - Visual acuity reduced [Not Recovered/Not Resolved]
  - Cerebral haemorrhage [Recovered/Resolved]
  - Retinal haemorrhage [Recovered/Resolved]
  - Optic disc haemorrhage [Recovered/Resolved]
  - Optic disc haemorrhage [Recovered/Resolved]
  - Retinal haemorrhage [Recovered/Resolved]
  - Optic disc haemorrhage [Recovered/Resolved]
  - Retinal haemorrhage [Recovered/Resolved]
  - Optic disc haemorrhage [Recovered/Resolved]
  - Optic disc haemorrhage [Recovered/Resolved]
  - Optic disc haemorrhage [Recovered/Resolved]
  - Retinal haemorrhage [Recovered/Resolved]
  - Optic disc haemorrhage [Not Recovered/Not Resolved]
  - Optic disc haemorrhage [Recovered/Resolved]
  - Optic disc haemorrhage [Not Recovered/Not Resolved]
  - Retinal haemorrhage [Not Recovered/Not Resolved]
  - Retinal haemorrhage [Recovered/Resolved]
  - Retinal haemorrhage [Not Recovered/Not Resolved]
  - Optic disc haemorrhage [Recovered/Resolved]
  - Optic disc haemorrhage [Not Recovered/Not Resolved]
  - Retinal haemorrhage [Recovered/Resolved]
  - Retinal haemorrhage [Recovered/Resolved]
  - Retinal haemorrhage [Recovered/Resolved]
  - Retinal haemorrhage [Recovered/Resolved]
  - Retinal haemorrhage [Recovered/Resolved]
  - Retinal exudates [Not Recovered/Not Resolved]
  - Optic disc haemorrhage [Recovered/Resolved]
  - Optic disc haemorrhage [Not Recovered/Not Resolved]
  - Retinal haemorrhage [Not Recovered/Not Resolved]
  - Retinal haemorrhage [Not Recovered/Not Resolved]
  - Retinal exudates [Not Recovered/Not Resolved]
  - Optic nerve disorder [Not Recovered/Not Resolved]
  - Hypokalaemia [Recovered/Resolved]
  - Cardiac failure acute [Recovering/Resolving]
  - Anaemia [Recovering/Resolving]
  - Dementia Alzheimer^s type [Not Recovered/Not Resolved]
  - Pneumonia aspiration [Recovered/Resolved]
  - Optic disc haemorrhage [Recovered/Resolved]
  - Hyperuricaemia [Unknown]
  - Disease progression [Unknown]
  - Dermatophytosis of nail [Recovered/Resolved]
  - Cellulitis [Recovered/Resolved]
  - Constipation [Recovered/Resolved]
  - Face injury [Recovered/Resolved]
  - Nocturia [Recovered/Resolved]
  - Hypertension [Not Recovered/Not Resolved]

NARRATIVE: CASE EVENT DATE: 20230323
